FAERS Safety Report 6579464-3 (Version None)
Quarter: 2010Q1

REPORT INFORMATION
  Report Type: 
  Country: None (occurrence: None)
  Receive Date: 20100212
  Receipt Date: 20100209
  Transmission Date: 20100710
  Serious: Yes (Hospitalization)
  Sender: FDA-Public Use
  Company Number: CA-BRISTOL-MYERS SQUIBB COMPANY-14970933

PATIENT
  Age: 64 Year
  Sex: Female

DRUGS (5)
  1. ORENCIA [Suspect]
     Indication: RHEUMATOID ARTHRITIS
     Dosage: LAST DOSE: 04FEB10; INF: 2
     Route: 042
     Dates: start: 20100121
  2. PARIET [Concomitant]
  3. PREDNISONE [Concomitant]
  4. ASPIRIN [Concomitant]
  5. EZETROL [Concomitant]

REACTIONS (4)
  - BLOOD PRESSURE INCREASED [None]
  - FATIGUE [None]
  - HEADACHE [None]
  - TACHYCARDIA [None]
